FAERS Safety Report 8732915 (Version 3)
Quarter: 2012Q4

REPORT INFORMATION
  Report Type: 
  Country: US (occurrence: US)
  Receive Date: 20120820
  Receipt Date: 20121203
  Transmission Date: 20130627
  Serious: Yes (Death, Life-Threatening, Hospitalization, Other)
  Sender: FDA-Public Use
  Company Number: US-ELI_LILLY_AND_COMPANY-US201206003093

PATIENT
  Age: 87 Year
  Sex: Female
  Weight: 56 kg

DRUGS (11)
  1. HUMULIN REGULAR [Suspect]
     Indication: BLOOD GLUCOSE INCREASED
     Dosage: 5 u, single
     Route: 042
     Dates: start: 20120605
  2. HUMULIN REGULAR [Suspect]
     Dosage: 20 u, single
     Route: 058
     Dates: start: 20120605
  3. HUMALOG LISPRO [Suspect]
     Dosage: 12 u, single
     Dates: start: 20120605, end: 20120605
  4. JANUVIA [Concomitant]
  5. GLIPIZIDE [Concomitant]
  6. PREDNISONE [Concomitant]
  7. IPRATROPIUM BROMIDE [Concomitant]
  8. LANTUS [Concomitant]
  9. PLAVIX [Concomitant]
  10. SYNTHROID [Concomitant]
  11. SPIRIVA [Concomitant]

REACTIONS (4)
  - Cardio-respiratory arrest [Fatal]
  - Hypoglycaemic unconsciousness [Recovered/Resolved]
  - Pneumonia [Recovered/Resolved]
  - Blood glucose increased [Unknown]
